FAERS Safety Report 5368037-6 (Version None)
Quarter: 2007Q2

REPORT INFORMATION
  Report Type: 
  Country: None (occurrence: None)
  Receive Date: 20070622
  Receipt Date: 20070612
  Transmission Date: 20071010
  Serious: Yes (Other)
  Sender: FDA-Public Use
  Company Number: US-PFIZER INC-2007048789

PATIENT
  Sex: Male
  Weight: 68 kg

DRUGS (3)
  1. NORVASC [Suspect]
     Indication: HYPERTENSION
     Route: 048
  2. TOPROL-XL [Concomitant]
  3. VALSARTAN [Concomitant]

REACTIONS (1)
  - RENAL FAILURE [None]
